FAERS Safety Report 19750299 (Version 3)
Quarter: 2021Q4

REPORT INFORMATION
  Report Type: Report from Study
  Country: JP (occurrence: JP)
  Receive Date: 20210826
  Receipt Date: 20211209
  Transmission Date: 20220304
  Serious: Yes (Hospitalization)
  Sender: FDA-Public Use
  Company Number: FR-CELGENE-JPN-20210804920

PATIENT
  Age: 77 Year
  Sex: Male
  Weight: 78.7 kg

DRUGS (33)
  1. AZACITIDINE [Suspect]
     Active Substance: AZACITIDINE
     Indication: Acute myeloid leukaemia
     Dosage: 142 MILLIGRAM
     Route: 058
     Dates: start: 20200420, end: 20200428
  2. AZACITIDINE [Suspect]
     Active Substance: AZACITIDINE
     Dosage: 137 MILLIGRAM
     Route: 058
     Dates: start: 20200601, end: 20200609
  3. AZACITIDINE [Suspect]
     Active Substance: AZACITIDINE
     Dosage: 134 MILLIGRAM
     Route: 058
     Dates: start: 20200629, end: 20200707
  4. AZACITIDINE [Suspect]
     Active Substance: AZACITIDINE
     Dosage: 136 MILLIGRAM
     Route: 058
     Dates: start: 20200803, end: 20200811
  5. AZACITIDINE [Suspect]
     Active Substance: AZACITIDINE
     Dosage: 133 MILLIGRAM
     Route: 058
     Dates: start: 20200908, end: 20201105
  6. AZACITIDINE [Suspect]
     Active Substance: AZACITIDINE
     Dosage: 134 MILLIGRAM
     Route: 058
     Dates: start: 20201124, end: 20201130
  7. AZACITIDINE [Suspect]
     Active Substance: AZACITIDINE
     Dosage: 136 MILLIGRAM
     Route: 058
     Dates: start: 20201221, end: 20201227
  8. AZACITIDINE [Suspect]
     Active Substance: AZACITIDINE
     Dosage: 138 MILLIGRAM
     Route: 058
     Dates: start: 20210118, end: 20210124
  9. AZACITIDINE [Suspect]
     Active Substance: AZACITIDINE
     Dosage: 137 MILLIGRAM
     Route: 058
     Dates: start: 20210216, end: 20210222
  10. AZACITIDINE [Suspect]
     Active Substance: AZACITIDINE
     Dosage: 135 MILLIGRAM
     Route: 058
     Dates: start: 20210326, end: 20210419
  11. AZACITIDINE [Suspect]
     Active Substance: AZACITIDINE
     Dosage: 133 MILLIGRAM
     Route: 058
     Dates: start: 20210511, end: 20210517
  12. AZACITIDINE [Suspect]
     Active Substance: AZACITIDINE
     Dosage: 134 MILLIGRAM
     Route: 058
     Dates: start: 20210608, end: 20210714
  13. AZACITIDINE [Suspect]
     Active Substance: AZACITIDINE
     Dosage: 65 MILLIGRAM
     Route: 058
     Dates: start: 20210831, end: 20211004
  14. AZACITIDINE [Suspect]
     Active Substance: AZACITIDINE
     Dosage: 64 MILLIGRAM
     Route: 058
     Dates: start: 20211026
  15. PIRENOXINE SODIUM [Concomitant]
     Indication: Product used for unknown indication
     Route: 065
  16. ROSUVASTATIN CALCIUM [Concomitant]
     Active Substance: ROSUVASTATIN CALCIUM
     Indication: Product used for unknown indication
     Route: 065
  17. MAGNESIUM OXIDE [Concomitant]
     Active Substance: MAGNESIUM OXIDE
     Indication: Product used for unknown indication
     Route: 065
     Dates: start: 20201005
  18. FEBUXOSTAT [Concomitant]
     Active Substance: FEBUXOSTAT
     Indication: Product used for unknown indication
     Route: 065
     Dates: start: 20210202
  19. NIFEDIPINE [Concomitant]
     Active Substance: NIFEDIPINE
     Indication: Product used for unknown indication
     Route: 065
     Dates: start: 20210203
  20. NIFEDIPINE [Concomitant]
     Active Substance: NIFEDIPINE
     Route: 065
  21. NIFEDIPINE [Concomitant]
     Active Substance: NIFEDIPINE
     Route: 065
  22. DOXAZOSIN MESYLATE [Concomitant]
     Active Substance: DOXAZOSIN MESYLATE
     Indication: Product used for unknown indication
     Route: 065
     Dates: start: 20210309
  23. SODIUM BICARBONATE [Concomitant]
     Active Substance: SODIUM BICARBONATE
     Indication: Product used for unknown indication
     Route: 065
     Dates: start: 20210504
  24. SODIUM BICARBONATE [Concomitant]
     Active Substance: SODIUM BICARBONATE
     Route: 065
     Dates: start: 20210610, end: 20210817
  25. DARBEPOETIN ALFA [Concomitant]
     Active Substance: DARBEPOETIN ALFA
     Indication: Product used for unknown indication
     Route: 065
     Dates: start: 20210517
  26. SODIUM POLYSTYRENE SULFONATE [Concomitant]
     Active Substance: SODIUM POLYSTYRENE SULFONATE
     Indication: Product used for unknown indication
     Route: 065
     Dates: start: 20210608
  27. FUROSEMIDE [Concomitant]
     Active Substance: FUROSEMIDE
     Indication: Product used for unknown indication
     Route: 065
     Dates: start: 20210709
  28. INDAPAMIDE [Concomitant]
     Active Substance: INDAPAMIDE
     Indication: Product used for unknown indication
     Route: 065
     Dates: start: 20210709
  29. VONOPRAZAN [Concomitant]
     Active Substance: VONOPRAZAN
     Indication: Product used for unknown indication
     Route: 065
  30. OLMESARTAN MEDOXOMIL [Concomitant]
     Active Substance: OLMESARTAN MEDOXOMIL
     Indication: Product used for unknown indication
     Route: 065
     Dates: start: 20210821, end: 20210825
  31. IVOSIDENIB [Suspect]
     Active Substance: IVOSIDENIB
     Indication: Acute myeloid leukaemia
     Dosage: 500 MILLIGRAM
     Route: 048
     Dates: start: 20200420, end: 20200427
  32. IVOSIDENIB [Suspect]
     Active Substance: IVOSIDENIB
     Dosage: 500 MILLIGRAM
     Route: 048
     Dates: start: 20200428
  33. IVOSIDENIB [Suspect]
     Active Substance: IVOSIDENIB
     Dosage: 250 MILLIGRAM
     Route: 048
     Dates: start: 20210805

REACTIONS (2)
  - Renal disorder [Recovered/Resolved]
  - Renal disorder [Recovered/Resolved]

NARRATIVE: CASE EVENT DATE: 20210805
